FAERS Safety Report 5714468-1 (Version None)
Quarter: 2008Q2

REPORT INFORMATION
  Report Type: 
  Country: None (occurrence: None)
  Receive Date: 20080423
  Receipt Date: 20080415
  Transmission Date: 20081010
  Serious: Yes (Disabling)
  Sender: FDA-Public Use
  Company Number: PHHY2008IT05991

PATIENT
  Age: 35 Year
  Sex: Male

DRUGS (1)
  1. CLOZAPINE [Suspect]
     Dosage: 175 MG/DAY

REACTIONS (5)
  - APNOEA [None]
  - BEDRIDDEN [None]
  - DISEASE PROGRESSION [None]
  - MECHANICAL VENTILATION [None]
  - VERTIGO [None]
